FAERS Safety Report 21352686 (Version 1)
Quarter: 2022Q3

REPORT INFORMATION
  Report Type: Spontaneous
  Country: CA (occurrence: CA)
  Receive Date: 20220920
  Receipt Date: 20220920
  Transmission Date: 20221027
  Serious: Yes (Disabling)
  Sender: FDA-Public Use
  Company Number: CA-AMGEN-CANSP2022159528

PATIENT
  Age: 63 Year
  Sex: Male
  Weight: 95 kg

DRUGS (1)
  1. REPATHA [Suspect]
     Active Substance: EVOLOCUMAB
     Indication: Blood cholesterol abnormal
     Dosage: 140 MILLIGRAM, Q2WK
     Route: 058

REACTIONS (14)
  - Concomitant disease aggravated [Unknown]
  - Confusional state [Unknown]
  - Dyspnoea [Unknown]
  - Feeding disorder [Unknown]
  - Hyperhidrosis [Unknown]
  - Joint swelling [Unknown]
  - Nasal congestion [Unknown]
  - Fibromyalgia [Unknown]
  - Flatulence [Unknown]
  - Asthenia [Unknown]
  - Diarrhoea [Unknown]
  - Erythema [Unknown]
  - Headache [Unknown]
  - Arthralgia [Unknown]
